FAERS Safety Report 6249988-7 (Version None)
Quarter: 2009Q2

REPORT INFORMATION
  Report Type: 
  Country: None (occurrence: None)
  Receive Date: 20090629
  Receipt Date: 20090624
  Transmission Date: 20091009
  Serious: Yes (Life-Threatening)
  Sender: FDA-Public Use
  Company Number: US-GENENTECH-284494

PATIENT
  Sex: Female

DRUGS (3)
  1. LUCENTIS [Suspect]
     Indication: MACULAR DEGENERATION
     Dosage: 0.5 MG, X1
     Route: 031
     Dates: start: 20090506, end: 20090506
  2. ASPIRIN [Concomitant]
     Indication: DRUG USE FOR UNKNOWN INDICATION
     Dosage: UNK
  3. VIGAMOX [Concomitant]
     Indication: DRUG USE FOR UNKNOWN INDICATION
     Dosage: UNK
     Dates: start: 20090503, end: 20090506

REACTIONS (3)
  - BLOOD PRESSURE INCREASED [None]
  - CHEST PAIN [None]
  - HEADACHE [None]
